FAERS Safety Report 8201186-3 (Version None)
Quarter: 2012Q1

REPORT INFORMATION
  Report Type: 
  Country: None (occurrence: None)
  Receive Date: 20120312
  Receipt Date: 20120305
  Transmission Date: 20120608
  Serious: Yes (Death, Other)
  Sender: FDA-Public Use
  Company Number: PHHY2012JP019503

PATIENT
  Age: 54 Year
  Sex: Female

DRUGS (2)
  1. METHOTREXATE [Concomitant]
     Indication: BONE MARROW TRANSPLANT
  2. CYCLOSPORINE [Suspect]
     Indication: BONE MARROW TRANSPLANT

REACTIONS (3)
  - ACUTE GRAFT VERSUS HOST DISEASE [None]
  - POST TRANSPLANT DISTAL LIMB SYNDROME [None]
  - THROMBOTIC MICROANGIOPATHY [None]
